FAERS Safety Report 10069965 (Version 4)
Quarter: 2014Q2

REPORT INFORMATION
  Report Type: Spontaneous
  Country: MA (occurrence: MA)
  Receive Date: 20140410
  Receipt Date: 20140429
  Transmission Date: 20141212
  Serious: Yes (Death, Hospitalization, Other)
  Sender: FDA-Public Use
  Company Number: MA-JNJFOC-20140403160

PATIENT
  Age: 14 Year
  Sex: Female
  Weight: 57 kg

DRUGS (8)
  1. REMICADE [Suspect]
     Indication: COLITIS
     Route: 042
     Dates: start: 20140331
  2. REMICADE [Suspect]
     Indication: ENTEROCOLITIS HAEMORRHAGIC
     Route: 042
     Dates: start: 20140331
  3. ATARAX [Concomitant]
     Indication: PROPHYLAXIS
     Route: 065
  4. PERFALGAN [Concomitant]
     Indication: PROPHYLAXIS
     Route: 065
  5. SOLU MEDROL [Concomitant]
     Indication: PROPHYLAXIS
     Route: 065
  6. CIPROFLOXACINE [Concomitant]
     Indication: CHRONIC GASTRITIS
     Route: 065
  7. TRIAXONE [Concomitant]
     Indication: CHRONIC GASTRITIS
     Route: 065
  8. FLAGYL [Concomitant]
     Indication: CHRONIC GASTRITIS
     Route: 065

REACTIONS (13)
  - Intervertebral disc disorder [Fatal]
  - Demyelination [Unknown]
  - Brain injury [Unknown]
  - Convulsion [Unknown]
  - Oral herpes [Unknown]
  - Disseminated intravascular coagulation [Unknown]
  - Vasculitis [Unknown]
  - Enterocolitis haemorrhagic [Not Recovered/Not Resolved]
  - Anaemia [Unknown]
  - Shock [Unknown]
  - Hallucination [Unknown]
  - Headache [Unknown]
  - Nausea [Unknown]
